FAERS Safety Report 8420267-2 (Version None)
Quarter: 2012Q2

REPORT INFORMATION
  Report Type: 
  Country: None (occurrence: None)
  Receive Date: 20120607
  Receipt Date: 20120604
  Transmission Date: 20120825
  Serious: Yes (Life-Threatening, Hospitalization, Other)
  Sender: FDA-Public Use
  Company Number: JP-B.I. PHARMACEUTICALS,INC./RIDGEFIELD-2012-BP-10988YA

PATIENT
  Sex: Male
  Weight: 105 kg

DRUGS (8)
  1. TAMSULOSIN HCL [Suspect]
     Indication: BENIGN PROSTATIC HYPERPLASIA
     Dosage: 0.2 MG
     Route: 048
  2. ATELEC (CILNIDIPINE) [Concomitant]
  3. LANSOPRAZOLE [Concomitant]
  4. SELECTOL (CELIPROLOL HYDROCHLORIDE) [Concomitant]
  5. CEFTRIAXONE [Concomitant]
     Dates: start: 20120428
  6. GARENOXACIN MESYLATE [Suspect]
     Indication: INFECTION PROPHYLAXIS
     Dosage: 400 MG
     Route: 048
     Dates: start: 20120509, end: 20120509
  7. UNISIA (CANDESARTAN CILEXETIL, AMLODIPINE BESILATE) [Concomitant]
  8. TENORMIN [Concomitant]

REACTIONS (3)
  - SUPRAVENTRICULAR EXTRASYSTOLES [None]
  - SINUS ARREST [None]
  - CELLULITIS [None]
